FAERS Safety Report 7632211-6 (Version None)
Quarter: 2011Q3

REPORT INFORMATION
  Report Type: 
  Country: None (occurrence: None)
  Receive Date: 20110725
  Receipt Date: 20100614
  Transmission Date: 20111222
  Serious: Yes (Hospitalization, Other)
  Sender: FDA-Public Use
  Company Number: US-BRISTOL-MYERS SQUIBB COMPANY-15153083

PATIENT
  Age: 92 Year
  Sex: Female

DRUGS (5)
  1. FORTEO [Suspect]
     Indication: OSTEOPOROSIS
     Dosage: 250MCG/ML DISPOSABLE PEN INTERRUPTED IN DEC09 AND THEN RESTARTED. APPROX 11MAY10 DRUG WITHDRAWN
     Dates: start: 20090101, end: 20100501
  2. ASPIRIN [Concomitant]
  3. ZETIA [Concomitant]
  4. VITAMIN D [Concomitant]
  5. COUMADIN [Suspect]

REACTIONS (6)
  - HAEMORRHAGE [None]
  - HEMIPARESIS [None]
  - DIZZINESS [None]
  - CEREBROVASCULAR ACCIDENT [None]
  - NAUSEA [None]
  - BLOOD PRESSURE INCREASED [None]
